FAERS Safety Report 7556233-9 (Version None)
Quarter: 2011Q2

REPORT INFORMATION
  Report Type: 
  Country: None (occurrence: None)
  Receive Date: 20110615
  Receipt Date: 20110615
  Transmission Date: 20111010
  Serious: Yes (Life-Threatening)
  Sender: FDA-Public Use
  Company Number: None

PATIENT
  Age: 33 Year
  Sex: Female
  Weight: 146.9654 kg

DRUGS (1)
  1. SAPHRIS [Suspect]
     Indication: BIPOLAR DISORDER
     Dosage: 10MG BID SL
     Route: 060
     Dates: start: 20110513, end: 20110607

REACTIONS (3)
  - DEPRESSION [None]
  - SUICIDAL IDEATION [None]
  - MEMORY IMPAIRMENT [None]
